FAERS Safety Report 22086862 (Version 1)
Quarter: 2023Q1

REPORT INFORMATION
  Report Type: Spontaneous
  Country: HR (occurrence: HR)
  Receive Date: 20230312
  Receipt Date: 20230312
  Transmission Date: 20230418
  Serious: Yes (Disabling)
  Sender: FDA-Public Use
  Company Number: None

PATIENT
  Age: 72 Year
  Sex: Male
  Weight: 75 kg

DRUGS (4)
  1. CIPROFLOXACIN [Suspect]
     Active Substance: CIPROFLOXACIN
     Indication: Urinary tract infection pseudomonal
     Dosage: 500 MG (0.5 DAY)
     Route: 048
     Dates: start: 20230203, end: 20230213
  2. LINEZOLID [Concomitant]
     Active Substance: LINEZOLID
     Indication: Medical device site joint infection
     Dosage: 600 MG (0.5 DAY)
     Route: 048
     Dates: start: 20221208, end: 20230113
  3. LINEZOLID [Concomitant]
     Active Substance: LINEZOLID
     Dosage: 600 MG (0.5 DAYS)
     Route: 048
     Dates: start: 20230125, end: 20230131
  4. DAPTOMYCIN [Concomitant]
     Active Substance: DAPTOMYCIN
     Indication: Medical device site joint infection
     Dosage: UNK
     Route: 065
     Dates: start: 202302

REACTIONS (1)
  - Visual impairment [Not Recovered/Not Resolved]

NARRATIVE: CASE EVENT DATE: 20230213
